FAERS Safety Report 7699343-8 (Version None)
Quarter: 2011Q3

REPORT INFORMATION
  Report Type: 
  Country: None (occurrence: None)
  Receive Date: 20110819
  Receipt Date: 20110808
  Transmission Date: 20111222
  Serious: Yes (Hospitalization, Other)
  Sender: FDA-Public Use
  Company Number: US-BAYER-201042029NA

PATIENT
  Age: 17 Year
  Sex: Female
  Weight: 131.52 kg

DRUGS (6)
  1. TOPAMAX [Concomitant]
     Dosage: UNK
     Dates: start: 20080627
  2. LEXAPRO [Concomitant]
     Dosage: UNK
     Dates: start: 20080627
  3. YAZ [Suspect]
     Indication: PREMENSTRUAL SYNDROME
  4. SEROQUEL [Concomitant]
     Indication: BIPOLAR I DISORDER
     Dosage: UNK
     Dates: start: 20080627
  5. YAZ [Suspect]
     Indication: CONTRACEPTION
     Dosage: UNK UNK, UNK
     Route: 048
     Dates: start: 20070101, end: 20080601
  6. METHIMAZOLE [Concomitant]
     Dosage: UNK
     Dates: start: 20070101, end: 20090101

REACTIONS (6)
  - PULMONARY EMBOLISM [None]
  - MENTAL DISORDER [None]
  - WEIGHT INCREASED [None]
  - ANXIETY [None]
  - DYSPNOEA [None]
  - PULMONARY INFARCTION [None]
